FAERS Safety Report 23847986 (Version 4)
Quarter: 2024Q2

REPORT INFORMATION
  Report Type: Spontaneous
  Country: CA (occurrence: None)
  Receive Date: 20240513
  Receipt Date: 20240611
  Transmission Date: 20240716
  Serious: Yes (Other)
  Sender: FDA-Public Use
  Company Number: CA-ROCHE-3561272

PATIENT
  Sex: Male

DRUGS (2)
  1. AVASTIN [Suspect]
     Active Substance: BEVACIZUMAB
     Indication: Neovascular age-related macular degeneration
     Route: 065
     Dates: start: 2014
  2. AVASTIN [Suspect]
     Active Substance: BEVACIZUMAB
     Dosage: 1.25 MG/0.05 ML
     Route: 065
     Dates: start: 20160929, end: 20240507

REACTIONS (6)
  - Eye haemorrhage [Unknown]
  - Blindness [Recovering/Resolving]
  - Off label use [Unknown]
  - Retinal oedema [Unknown]
  - Retinal haemorrhage [Unknown]
  - Heart rate irregular [Unknown]
